FAERS Safety Report 9185688 (Version 1)
Quarter: 2013Q1

REPORT INFORMATION
  Report Type: Spontaneous
  Country: US (occurrence: US)
  Receive Date: 20130325
  Receipt Date: 20130325
  Transmission Date: 20140127
  Serious: Yes (Death, Other)
  Sender: FDA-Public Use
  Company Number: US-TEVA-393122USA

PATIENT
  Age: 53 Year
  Sex: Male

DRUGS (1)
  1. EPOPROSTENOL [Suspect]
     Indication: PORTOPULMONARY HYPERTENSION
     Dosage: TITRATED TO 16 NG/KG/MIN
     Route: 041

REACTIONS (3)
  - Shock haemorrhagic [Fatal]
  - Hypersplenism [Unknown]
  - Treatment failure [Unknown]
